FAERS Safety Report 6758115-9 (Version None)
Quarter: 2010Q2

REPORT INFORMATION
  Report Type: 
  Country: None (occurrence: None)
  Receive Date: 20100607
  Receipt Date: 20100604
  Transmission Date: 20101027
  Serious: Yes (Life-Threatening, Other)
  Sender: FDA-Public Use
  Company Number: US-B.I. PHARMACEUTICALS,INC./RIDGEFIELD-2010-BP-05913PF

PATIENT
  Sex: Female
  Weight: 61.69 kg

DRUGS (19)
  1. SPIRIVA [Suspect]
     Indication: CHRONIC OBSTRUCTIVE PULMONARY DISEASE
  2. AMLODIPINE [Suspect]
     Indication: HYPERTENSION
     Route: 048
  3. MEXILETINE [Suspect]
     Indication: CARDIAC ARREST
     Route: 048
  4. MEXILETINE [Suspect]
     Indication: ARRHYTHMIA
  5. OMEPRAZOLE [Concomitant]
     Indication: ABDOMINAL DISCOMFORT
     Dosage: 40 MG
     Route: 048
  6. ISOSORBIDE MONONITRATE [Concomitant]
     Indication: CARDIAC DISORDER
  7. OXYBUTNIN [Concomitant]
     Indication: BLADDER DISORDER
     Route: 048
  8. POTASSIUM CHLORIDE ER [Concomitant]
     Dosage: 60 MEQ
     Route: 048
  9. PRAVASTATIN SODIUM [Concomitant]
     Dosage: 40 MG
     Route: 048
  10. WARFARIN SODIUM [Concomitant]
     Indication: CARDIAC DISORDER
     Route: 048
  11. DIGOXIN [Concomitant]
     Indication: CARDIAC DISORDER
     Route: 048
  12. DIGOXIN [Concomitant]
     Indication: CHRONIC OBSTRUCTIVE PULMONARY DISEASE
  13. ASPIRIN [Concomitant]
     Indication: CARDIAC DISORDER
     Dosage: 81 MG
     Route: 048
  14. IPRATROPIUM BROMIDE [Concomitant]
  15. OXYGEN [Concomitant]
     Indication: SLEEP APNOEA SYNDROME
  16. SYMBICORT [Concomitant]
     Indication: CHRONIC OBSTRUCTIVE PULMONARY DISEASE
  17. BENAZEPRIL HYDROCHLORIDE [Concomitant]
     Dosage: 5 MG
     Route: 048
  18. FUROSEMIDE [Concomitant]
     Indication: FLUID RETENTION
     Route: 048
  19. NEBULIZER FOR COPD [Concomitant]
     Indication: CHRONIC OBSTRUCTIVE PULMONARY DISEASE

REACTIONS (11)
  - ABDOMINAL DISCOMFORT [None]
  - APPETITE DISORDER [None]
  - ARRHYTHMIA [None]
  - CARDIAC ARREST [None]
  - DIABETES MELLITUS [None]
  - DIZZINESS [None]
  - DYSPNOEA [None]
  - FALL [None]
  - FEAR OF WEIGHT GAIN [None]
  - HEART RATE INCREASED [None]
  - SLEEP APNOEA SYNDROME [None]
